FAERS Safety Report 7733716-X (Version None)
Quarter: 2011Q3

REPORT INFORMATION
  Report Type: 
  Country: None (occurrence: None)
  Receive Date: 20110907
  Receipt Date: 20110901
  Transmission Date: 20111222
  Serious: Yes (Other)
  Sender: FDA-Public Use
  Company Number: FR-PFIZER INC-2011205678

PATIENT
  Age: 11 Year
  Sex: Female

DRUGS (2)
  1. VINCRISTINE [Interacting]
     Indication: ACUTE LYMPHOCYTIC LEUKAEMIA
     Dosage: UNK
  2. PIPERACILLIN AND TAZOBACTAM [Suspect]
     Indication: FEBRILE NEUTROPENIA
     Dosage: UNK

REACTIONS (6)
  - DRUG INTERACTION [None]
  - CHOLESTASIS [None]
  - FEBRILE NEUTROPENIA [None]
  - AUTONOMIC NEUROPATHY [None]
  - TOXICITY TO VARIOUS AGENTS [None]
  - ILEUS PARALYTIC [None]
